FAERS Safety Report 22059167 (Version 1)
Quarter: 2023Q1

REPORT INFORMATION
  Report Type: Spontaneous
  Country: US (occurrence: None)
  Receive Date: 20230302
  Receipt Date: 20230302
  Transmission Date: 20230418
  Serious: Yes (Hospitalization)
  Sender: FDA-Public Use
  Company Number: None

PATIENT
  Age: 76 Year
  Sex: Male
  Weight: 58.06 kg

DRUGS (26)
  1. LENALIDOMIDE [Suspect]
     Active Substance: LENALIDOMIDE
     Indication: Plasma cell myeloma
     Dosage: OTHER FREQUENCY : 3W, 1W OFF;?
     Route: 048
  2. ACETAMINOPHEN [Concomitant]
     Active Substance: ACETAMINOPHEN
  3. ASPIRIN [Concomitant]
     Active Substance: ASPIRIN
  4. AZELASTINE HYDROCHLORIDE [Concomitant]
     Active Substance: AZELASTINE HYDROCHLORIDE
  5. CHOLESTYRAMINE [Concomitant]
     Active Substance: CHOLESTYRAMINE
  6. DEXAMETHASONE [Concomitant]
     Active Substance: DEXAMETHASONE
  7. DOCUSATE SODIUM [Concomitant]
     Active Substance: DOCUSATE SODIUM
  8. FAMOTIDINE [Concomitant]
     Active Substance: FAMOTIDINE
  9. FERROUS SULFATE [Concomitant]
     Active Substance: FERROUS SULFATE
  10. FEXOFENADINE [Concomitant]
     Active Substance: FEXOFENADINE HYDROCHLORIDE
  11. FLUTICASONE [Concomitant]
     Active Substance: FLUTICASONE
  12. FOLIC ACID [Concomitant]
     Active Substance: FOLIC ACID
  13. HYDROCHLOROTHIAZIDE [Concomitant]
     Active Substance: HYDROCHLOROTHIAZIDE
  14. ACETAMINOPHEN\HYDROCODONE [Concomitant]
     Active Substance: ACETAMINOPHEN\HYDROCODONE
  15. Hydrocortisone External Cream [Concomitant]
  16. LEVOFLOXACIN [Concomitant]
     Active Substance: LEVOFLOXACIN
  17. LOPERAMIDE [Concomitant]
     Active Substance: LOPERAMIDE
  18. LOSARTAN POTASSIUM [Concomitant]
     Active Substance: LOSARTAN POTASSIUM
  19. MAGNESIUM OXIDE [Concomitant]
     Active Substance: MAGNESIUM OXIDE
  20. METFORMIN [Concomitant]
     Active Substance: METFORMIN HYDROCHLORIDE
  21. METOPROLOL [Concomitant]
     Active Substance: METOPROLOL
  22. NIFEDIPINE [Concomitant]
     Active Substance: NIFEDIPINE
  23. POTASSIUM CHLORIDE [Concomitant]
     Active Substance: POTASSIUM CHLORIDE
  24. SIMVASTATIN [Concomitant]
     Active Substance: SIMVASTATIN
  25. TAMSULOSIN [Concomitant]
     Active Substance: TAMSULOSIN
  26. VITAMIN D3 [Concomitant]
     Active Substance: CHOLECALCIFEROL

REACTIONS (1)
  - Therapy cessation [None]
